FAERS Safety Report 5866811-0 (Version None)
Quarter: 2008Q3

REPORT INFORMATION
  Report Type: 
  Country: None (occurrence: None)
  Receive Date: 20080828
  Receipt Date: 20080828
  Transmission Date: 20090109
  Serious: Yes (Other)
  Sender: FDA-Public Use
  Company Number: None

PATIENT
  Age: 72 Year
  Sex: Male
  Weight: 86.8638 kg

DRUGS (1)
  1. ALENDRONATE SODIUM 70 MG TEVA [Suspect]
     Indication: OSTEOPENIA
     Dosage: ONE 70MG PILL BIWEEKLY PO
     Route: 048
     Dates: start: 20080723, end: 20080806

REACTIONS (3)
  - MALOCCLUSION [None]
  - MUSCLE CONTRACTIONS INVOLUNTARY [None]
  - PAIN IN JAW [None]
